FAERS Safety Report 17605101 (Version 3)
Quarter: 2020Q2

REPORT INFORMATION
  Report Type: Spontaneous
  Country: PL (occurrence: PL)
  Receive Date: 20200331
  Receipt Date: 20200625
  Transmission Date: 20200713
  Serious: Yes (Hospitalization, Other)
  Sender: FDA-Public Use
  Company Number: PL-ACCORD-177629

PATIENT
  Age: 62 Year
  Sex: Male
  Weight: 96 kg

DRUGS (10)
  1. SODIUM CHLORIDE. [Concomitant]
     Active Substance: SODIUM CHLORIDE
     Dosage: STRENGTH: 10 %, 30ML OF 10% NACL IN 250 ML NORMAL SALINE
     Route: 041
  2. SPIRONOLACTONE. [Suspect]
     Active Substance: SPIRONOLACTONE
     Indication: OEDEMA PERIPHERAL
     Dosage: DAY 1-2, 3-5, 6-9, 50 MG ON ADMISSION
     Route: 048
  3. INSULIN [Concomitant]
     Active Substance: INSULIN NOS
     Dosage: 6-9 DAYS AFTER ADMISSION, 10-11 (DISCHARGE)
  4. GEMCITABINE/GEMCITABINE HYDROCHLORIDE [Suspect]
     Active Substance: GEMCITABINE\GEMCITABINE HYDROCHLORIDE
     Indication: PANCREATIC CARCINOMA
  5. FUROSEMIDE. [Suspect]
     Active Substance: FUROSEMIDE
     Indication: OEDEMA PERIPHERAL
     Dosage: DAY 3-5, 6-9, 100 MG 2H
     Route: 041
  6. PACLITAXEL. [Suspect]
     Active Substance: PACLITAXEL
     Indication: PANCREATIC CARCINOMA
  7. INSULIN [Concomitant]
     Active Substance: INSULIN NOS
     Dosage: 48 IU DAILY ON ADMISSION, 40 IU DAILY 1-2 DAYS AFTER ADMISSION
  8. ENOXAPARIN [Concomitant]
     Active Substance: ENOXAPARIN
     Route: 058
  9. FUROSEMIDE. [Suspect]
     Active Substance: FUROSEMIDE
     Indication: OEDEMA PERIPHERAL
     Dosage: ON ADMISSION
     Route: 048
  10. INSULIN [Concomitant]
     Active Substance: INSULIN NOS
     Dosage: 3-5 DAYS AFTER ADMISSION

REACTIONS (3)
  - Generalised oedema [Recovered/Resolved]
  - Hypotension [Recovered/Resolved]
  - Dyspnoea at rest [Recovering/Resolving]
